FAERS Safety Report 7018674-8 (Version None)
Quarter: 2010Q3

REPORT INFORMATION
  Report Type: 
  Country: None (occurrence: None)
  Receive Date: 20100924
  Receipt Date: 20100917
  Transmission Date: 20110219
  Serious: Yes (Other)
  Sender: FDA-Public Use
  Company Number: 018982

PATIENT
  Age: 24 Month
  Sex: Male

DRUGS (1)
  1. XUSAL (XUSAL) [Suspect]
     Dosage: XUSAL 5 DOSE 6 TABLETS MAX ORAL
     Route: 048

REACTIONS (1)
  - ACCIDENTAL DRUG INTAKE BY CHILD [None]
